FAERS Safety Report 5473586-6 (Version None)
Quarter: 2007Q3

REPORT INFORMATION
  Report Type: 
  Country: None (occurrence: None)
  Receive Date: 20070831
  Receipt Date: 20070604
  Transmission Date: 20080115
  Serious: No
  Sender: FDA-Public Use
  Company Number: 242408

PATIENT
  Age: 66 Year
  Sex: Female
  Weight: 97.5 kg

DRUGS (1)
  1. LUCENTIS [Suspect]
     Indication: OCULAR VASCULAR DISORDER
     Dosage: 0.5 MG, INTRAVITREAL
     Route: 050
     Dates: start: 20070319

REACTIONS (2)
  - ARTHROPOD BITE [None]
  - DERMATITIS CONTACT [None]
